FAERS Safety Report 5512597-9 (Version None)
Quarter: 2007Q4

REPORT INFORMATION
  Report Type: 
  Country: None (occurrence: None)
  Receive Date: 20071108
  Receipt Date: 20071108
  Transmission Date: 20080405
  Serious: Yes (Hospitalization)
  Sender: FDA-Public Use
  Company Number: None

PATIENT
  Age: 82 Year
  Sex: Female

DRUGS (14)
  1. ROPINIROLE HCL [Suspect]
     Indication: PARKINSON'S DISEASE
     Dosage: 0.25MG TID PO
     Route: 048
  2. ASCORBIC ACID [Concomitant]
  3. MULTI-VITAMIN [Concomitant]
  4. IRON [Concomitant]
  5. TRAZODONE HCL [Concomitant]
  6. COUMADIN [Concomitant]
  7. CLARITIN [Concomitant]
  8. PROTONIX [Concomitant]
  9. LOPRESSOR [Concomitant]
  10. DIGOXIN [Concomitant]
  11. ACIDOPHILUS [Concomitant]
  12. LASIX [Concomitant]
  13. CHOLESTYRAMINE [Concomitant]
  14. SINEMET [Concomitant]

REACTIONS (4)
  - DRUG INTERACTION [None]
  - METABOLIC ENCEPHALOPATHY [None]
  - TOXIC ENCEPHALOPATHY [None]
  - TREMOR [None]
